FAERS Safety Report 4489506-7 (Version None)
Quarter: 2004Q4

REPORT INFORMATION
  Report Type: 
  Country: None (occurrence: None)
  Receive Date: 20041101
  Receipt Date: 20041007
  Transmission Date: 20050328
  Serious: Yes (Other)
  Sender: FDA-Public Use
  Company Number: PHHO2004CA14398

PATIENT
  Age: 63 Year
  Sex: Female

DRUGS (2)
  1. CLOZARIL [Suspect]
     Indication: BIPOLAR DISORDER
     Dosage: 125 MG, QD
     Route: 048
     Dates: start: 20020913, end: 20040928
  2. KEMADRIN [Concomitant]

REACTIONS (3)
  - CONSTIPATION [None]
  - IMPAIRED GASTRIC EMPTYING [None]
  - VOMITING [None]
